FAERS Safety Report 14329444 (Version 1)
Quarter: 2017Q4

REPORT INFORMATION
  Report Type: Spontaneous
  Country: GB (occurrence: GB)
  Receive Date: 20171227
  Receipt Date: 20171227
  Transmission Date: 20180321
  Serious: Yes (Other)
  Sender: FDA-Public Use
  Company Number: GB-TEVA-2017-GB-836580

PATIENT
  Age: 61 Year
  Sex: Male
  Weight: 100 kg

DRUGS (10)
  1. ZEROBASE [Concomitant]
     Dosage: APPLY LIBERALLY AND REGULARLY.
     Dates: start: 20170913, end: 20171011
  2. CITALOPRAM [Suspect]
     Active Substance: CITALOPRAM HYDROBROMIDE
     Dates: start: 20171123
  3. MIRTAZAPINE. [Concomitant]
     Active Substance: MIRTAZAPINE
     Dosage: TAKE ONE AT BEDTIME FOR ONE WEEK AND THEN INCRE...
     Dates: start: 20171123
  4. VIBRIO CHOLERAE [Concomitant]
     Dates: start: 20171031, end: 20171101
  5. FLUCLOXACILLIN [Concomitant]
     Active Substance: FLUCLOXACILLIN
     Dates: start: 20171005, end: 20171012
  6. PROMETHAZINE HYDROCHLORIDE. [Concomitant]
     Active Substance: PROMETHAZINE HYDROCHLORIDE
     Dosage: AT NIGHT.
     Dates: start: 20171122
  7. PERICIAZINE [Concomitant]
     Active Substance: PERICIAZINE
     Dosage: TAKE ONE OR TWO TABLETS THREE TIMES A DAY WHEN ...
     Dates: start: 20171114
  8. PAROXETINE. [Concomitant]
     Active Substance: PAROXETINE
     Dates: start: 20171114, end: 20171117
  9. ZOPICLONE [Concomitant]
     Active Substance: ZOPICLONE
     Dosage: AT NIGHT.
     Dates: start: 20171123
  10. HYDROCORTISONE. [Concomitant]
     Active Substance: HYDROCORTISONE
     Dosage: APPLY SPARINGLY TO THE AFFECTED AREA.
     Dates: start: 20170913, end: 20170923

REACTIONS (2)
  - Hyperhidrosis [Unknown]
  - Burning sensation [Unknown]

NARRATIVE: CASE EVENT DATE: 20171123
